FAERS Safety Report 5285586-X (Version None)
Quarter: 2007Q1

REPORT INFORMATION
  Report Type: 
  Country: None (occurrence: None)
  Receive Date: 20061229
  Receipt Date: 20060926
  Transmission Date: 20070707
  Serious: Yes (Other)
  Sender: FDA-Public Use
  Company Number: 2006UW18751

PATIENT
  Age: 62 Year
  Sex: Male
  Weight: 97.068 kg

DRUGS (3)
  1. CRESTOR [Suspect]
     Indication: HYPERCHOLESTEROLAEMIA
     Dosage: 10 MG PO
     Route: 048
  2. ALTACE [Concomitant]
  3. ASPIRIN [Concomitant]

REACTIONS (6)
  - ASTHENIA [None]
  - LIBIDO DECREASED [None]
  - MALAISE [None]
  - MUSCLE SPASMS [None]
  - PARAESTHESIA [None]
  - PRURITUS [None]
